FAERS Safety Report 8952922 (Version 1)
Quarter: 2012Q4

REPORT INFORMATION
  Report Type: 
  Country: IT (occurrence: IT)
  Receive Date: 20121203
  Receipt Date: 20121203
  Transmission Date: 20130627
  Serious: Yes (Death, Hospitalization)
  Sender: FDA-Public Use
  Company Number: IT-ELI_LILLY_AND_COMPANY-IT201211008967

PATIENT
  Age: 65 Year
  Sex: Male

DRUGS (4)
  1. ALIMTA [Suspect]
     Indication: NON-SMALL CELL LUNG CANCER
     Dosage: 1000 (no unit)
     Route: 042
     Dates: start: 20121026
  2. CARBOPLATIN [Concomitant]
     Indication: NON-SMALL CELL LUNG CANCER
     Dosage: 400 mg, UNK
     Route: 042
     Dates: start: 20121026
  3. FOLIC ACID [Concomitant]
     Indication: NON-SMALL CELL LUNG CANCER
  4. DOBETIN [Concomitant]
     Indication: NON-SMALL CELL LUNG CANCER

REACTIONS (5)
  - Death [Fatal]
  - Pancytopenia [Unknown]
  - Renal failure [Unknown]
  - Diarrhoea [Unknown]
  - Infection [Unknown]
